FAERS Safety Report 9860648 (Version 1)
Quarter: 2014Q1

REPORT INFORMATION
  Report Type: Spontaneous
  Country: BR (occurrence: BR)
  Receive Date: 20140202
  Receipt Date: 20140202
  Transmission Date: 20141002
  Serious: No
  Sender: FDA-Public Use
  Company Number: BR-ALLERGAN-1300167US

PATIENT
  Age: 60 Year
  Sex: Female
  Weight: 63.8 kg

DRUGS (5)
  1. BOTOX [Suspect]
     Indication: SKIN WRINKLING
     Dosage: 16 UNITS, SINGLE
     Route: 030
     Dates: start: 20121022, end: 20121022
  2. BOTOX [Suspect]
     Indication: SKIN WRINKLING
     Dosage: 18 UNITS, SINGLE
     Route: 030
     Dates: start: 20121022, end: 20121022
  3. BOTOX [Suspect]
     Indication: SKIN WRINKLING
     Dosage: 7 UNITS, SINGLE
     Route: 030
     Dates: start: 20121022, end: 20121022
  4. BOTOX [Suspect]
     Indication: SKIN WRINKLING
     Dosage: 22 UNITS, SINGLE
     Dates: start: 20121022, end: 20121022
  5. BOTOX [Suspect]
     Indication: SKIN WRINKLING
     Dosage: 4 UNITS, SINGLE
     Route: 030
     Dates: start: 20121022, end: 20121022

REACTIONS (3)
  - Off label use [Unknown]
  - Drug ineffective [Unknown]
  - Off label use [Unknown]
